FAERS Safety Report 7444316-3 (Version None)
Quarter: 2011Q2

REPORT INFORMATION
  Report Type: 
  Country: None (occurrence: None)
  Receive Date: 20110419
  Receipt Date: 20110415
  Transmission Date: 20111010
  Serious: Yes (Other)
  Sender: FDA-Public Use
  Company Number: CHL-AE-2011-LAM-004

PATIENT
  Age: 11 Year
  Sex: Male

DRUGS (1)
  1. LAMOTRIGINE [Suspect]
     Indication: PETIT MAL EPILEPSY
     Dosage: 05.5-7MG/KG,DAY,

REACTIONS (2)
  - OCULOGYRIC CRISIS [None]
  - TOXICITY TO VARIOUS AGENTS [None]
